FAERS Safety Report 6626687-0 (Version None)
Quarter: 2010Q1

REPORT INFORMATION
  Report Type: 
  Country: None (occurrence: None)
  Receive Date: 20100308
  Receipt Date: 20100222
  Transmission Date: 20100710
  Serious: Yes (Life-Threatening, Hospitalization)
  Sender: FDA-Public Use
  Company Number: 2010-00242

PATIENT
  Age: 63 Year
  Sex: Female

DRUGS (1)
  1. RAMIPRIL [Suspect]
     Indication: HYPERTENSION
     Dosage: 2.5 MG,ORAL
     Route: 048
     Dates: end: 20100214

REACTIONS (1)
  - ANGIOEDEMA [None]
